FAERS Safety Report 16831613 (Version 3)
Quarter: 2020Q1

REPORT INFORMATION
  Report Type: Report from Study
  Country: None (occurrence: CO)
  Receive Date: 20190920
  Receipt Date: 20200219
  Transmission Date: 20200409
  Serious: Yes (Other)
  Sender: FDA-Public Use
  Company Number: CO-ABBVIE-19K-036-2930768-00

PATIENT
  Sex: Female
  Weight: 79 kg

DRUGS (3)
  1. HUMIRA [Suspect]
     Active Substance: ADALIMUMAB
     Indication: COLITIS ULCERATIVE
     Route: 058
     Dates: end: 20190826
  2. HUMIRA [Suspect]
     Active Substance: ADALIMUMAB
     Indication: COLITIS ULCERATIVE
     Route: 058
     Dates: start: 20140722
  3. HUMIRA [Suspect]
     Active Substance: ADALIMUMAB
     Route: 058
     Dates: start: 20191029

REACTIONS (14)
  - Ligament rupture [Recovering/Resolving]
  - Pollakiuria [Recovered/Resolved]
  - Fall [Recovering/Resolving]
  - Joint swelling [Recovered/Resolved]
  - Musculoskeletal disorder [Recovered/Resolved]
  - Arthralgia [Recovered/Resolved]
  - Weight fluctuation [Recovering/Resolving]
  - Arthritis [Recovered/Resolved]
  - Peripheral swelling [Recovered/Resolved]
  - Arthritis [Recovering/Resolving]
  - Colitis ulcerative [Recovering/Resolving]
  - Pain in extremity [Recovered/Resolved]
  - Diarrhoea [Recovering/Resolving]
  - Therapeutic response shortened [Not Recovered/Not Resolved]

NARRATIVE: CASE EVENT DATE: 2019
